FAERS Safety Report 9291106 (Version 5)
Quarter: 2013Q2

REPORT INFORMATION
  Report Type: Spontaneous
  Country: US (occurrence: None)
  Receive Date: 20120928
  Receipt Date: 20121219
  Transmission Date: 20140414
  Serious: Yes (Other)
  Sender: FDA-Public Use
  Company Number: ADR-2012-01622

PATIENT
  Sex: Male

DRUGS (5)
  1. BACLOFEN [Suspect]
     Indication: PAIN
  2. MORPHINE [Concomitant]
  3. FENTANYL [Concomitant]
  4. CLONIDINE [Concomitant]
  5. BUPIVACAINE [Concomitant]

REACTIONS (20)
  - Device computer issue [None]
  - Coma [None]
  - Device allergy [None]
  - Musculoskeletal stiffness [None]
  - Feeling cold [None]
  - Visual impairment [None]
  - Feeling abnormal [None]
  - Muscle disorder [None]
  - Obstructive airways disorder [None]
  - Dyspnoea [None]
  - Speech disorder [None]
  - Nasal congestion [None]
  - Loss of consciousness [None]
  - Epistaxis [None]
  - Fear [None]
  - General physical health deterioration [None]
  - Throat tightness [None]
  - Choking [None]
  - Neuropathy peripheral [None]
  - Anxiety [None]
